FAERS Safety Report 14383174 (Version 2)
Quarter: 2018Q1

REPORT INFORMATION
  Report Type: Report from Study
  Country: None (occurrence: US)
  Receive Date: 20180115
  Receipt Date: 20180208
  Transmission Date: 20180509
  Serious: Yes (Other)
  Sender: FDA-Public Use
  Company Number: US-ABBVIE-18K-163-2219925-00

PATIENT
  Age: 61 Year
  Sex: Female
  Weight: 83.99 kg

DRUGS (5)
  1. HUMIRA [Suspect]
     Active Substance: ADALIMUMAB
     Indication: RHEUMATOID ARTHRITIS
     Route: 058
     Dates: start: 2007
  2. ESTRADIOL. [Concomitant]
     Active Substance: ESTRADIOL
     Indication: OESTROGEN REPLACEMENT THERAPY
  3. ETODOLAC. [Concomitant]
     Active Substance: ETODOLAC
     Indication: RHEUMATOID ARTHRITIS
  4. HYDROXYCHLOROQUINE [Concomitant]
     Active Substance: HYDROXYCHLOROQUINE
     Indication: RHEUMATOID ARTHRITIS
  5. METHOTREXATE. [Concomitant]
     Active Substance: METHOTREXATE
     Indication: RHEUMATOID ARTHRITIS

REACTIONS (21)
  - Rotator cuff syndrome [Recovered/Resolved]
  - Muscle tightness [Recovered/Resolved]
  - Exostosis [Recovered/Resolved]
  - Osteoarthritis [Recovered/Resolved]
  - Aphonia [Recovered/Resolved]
  - Procedural pain [Recovered/Resolved]
  - Chest discomfort [Recovered/Resolved]
  - Exostosis [Recovered/Resolved]
  - Nasopharyngitis [Recovered/Resolved]
  - Bronchitis [Recovered/Resolved]
  - Exostosis [Recovered/Resolved]
  - Eye irritation [Unknown]
  - Musculoskeletal pain [Recovered/Resolved]
  - Musculoskeletal pain [Recovered/Resolved]
  - Nasopharyngitis [Unknown]
  - Upper respiratory tract infection [Recovered/Resolved]
  - Aphonia [Recovered/Resolved]
  - Procedural pain [Recovered/Resolved]
  - Rotator cuff syndrome [Recovered/Resolved]
  - Fatigue [Unknown]
  - Exostosis [Unknown]

NARRATIVE: CASE EVENT DATE: 2010
